FAERS Safety Report 4304996-8 (Version None)
Quarter: 2004Q1

REPORT INFORMATION
  Report Type: 
  Country: None (occurrence: None)
  Receive Date: 20040226
  Receipt Date: 20040129
  Transmission Date: 20041129
  Serious: Yes (Other)
  Sender: FDA-Public Use
  Company Number: US-GLAXOSMITHKLINE-A0495755A

PATIENT
  Sex: Male

DRUGS (3)
  1. WELLBUTRIN [Suspect]
     Indication: DEPRESSION
     Dosage: 300MG PER DAY
     Route: 048
  2. TENORMIN [Concomitant]
  3. VALIUM [Concomitant]

REACTIONS (5)
  - AMNESIA [None]
  - DELIRIUM [None]
  - NEURALGIA [None]
  - NEUROPATHY [None]
  - VERTIGO [None]
